FAERS Safety Report 14308508 (Version 1)
Quarter: 2017Q4

REPORT INFORMATION
  Report Type: Spontaneous
  Country: FR (occurrence: FR)
  Receive Date: 20171220
  Receipt Date: 20171220
  Transmission Date: 20180321
  Serious: Yes (Hospitalization, Other)
  Sender: FDA-Public Use
  Company Number: PHHY2017FR189443

PATIENT
  Age: 74 Year
  Sex: Male

DRUGS (2)
  1. DEXAMETHASONE. [Suspect]
     Active Substance: DEXAMETHASONE
     Indication: PLASMA CELL MYELOMA
     Dosage: 20 MG, ON DAY 1, 8, 15 AND 22
     Route: 065
  2. CARFILZOMIB [Suspect]
     Active Substance: CARFILZOMIB
     Indication: PLASMA CELL MYELOMA
     Route: 065

REACTIONS (6)
  - Drug effect incomplete [Unknown]
  - Bronchopneumopathy [Unknown]
  - Hypoglycaemia [Unknown]
  - General physical condition abnormal [Unknown]
  - Systemic inflammatory response syndrome [Recovering/Resolving]
  - Paraproteinaemia [Unknown]

NARRATIVE: CASE EVENT DATE: 2017
